FAERS Safety Report 14471688 (Version 1)
Quarter: 2018Q1

REPORT INFORMATION
  Report Type: Spontaneous
  Country: GB (occurrence: GB)
  Receive Date: 20180131
  Receipt Date: 20180131
  Transmission Date: 20180509
  Serious: Yes (Other)
  Sender: FDA-Public Use
  Company Number: GB-009507513-1801GBR010429

PATIENT
  Age: 78 Year
  Sex: Female

DRUGS (1)
  1. CARBIDOPA (+) LEVODOPA [Suspect]
     Active Substance: CARBIDOPA\LEVODOPA
     Indication: PARKINSON^S DISEASE
     Dosage: 25 / 100MG  - 8AM, 11:30AM, 16:00, 20:00 AND 22:00
     Route: 048

REACTIONS (3)
  - Mobility decreased [Unknown]
  - Dyskinesia [Unknown]
  - Inappropriate schedule of drug administration [Unknown]

NARRATIVE: CASE EVENT DATE: 20171102
